FAERS Safety Report 10026002 (Version 2)
Quarter: 2014Q1

REPORT INFORMATION
  Report Type: Spontaneous
  Country: JP (occurrence: JP)
  Receive Date: 20140320
  Receipt Date: 20140320
  Transmission Date: 20141002
  Serious: Yes (Hospitalization)
  Sender: FDA-Public Use
  Company Number: JP-KOWA-2008S1000046

PATIENT
  Age: 46 Year
  Sex: Male

DRUGS (4)
  1. LIVALO KOWA [Suspect]
     Indication: HYPERCHOLESTEROLAEMIA
     Route: 048
     Dates: start: 200807, end: 20080930
  2. ALLOZYM [Suspect]
     Indication: HYPERURICAEMIA
     Route: 048
     Dates: start: 20010806
  3. NU-LOTAN [Suspect]
     Indication: HYPERTENSION
     Route: 048
     Dates: start: 20020315
  4. SINSTATIN [Concomitant]
     Indication: HYPERCHOLESTEROLAEMIA
     Route: 048
     Dates: start: 20070426, end: 200807

REACTIONS (1)
  - Generalised oedema [Recovered/Resolved]
